FAERS Safety Report 5674944-7 (Version None)
Quarter: 2008Q2

REPORT INFORMATION
  Report Type: 
  Country: None (occurrence: None)
  Receive Date: 20080303
  Receipt Date: 20070323
  Transmission Date: 20081010
  Serious: Yes (Hospitalization)
  Sender: FDA-Public Use
  Company Number: RB-5661-2007

PATIENT
  Age: 36 Year
  Sex: Female
  Weight: 65.318 kg

DRUGS (5)
  1. SUBUTEX [Suspect]
     Dosage: 16 MG QD SUBLINGUAL
     Route: 060
  2. MIRTAZAPINE [Concomitant]
  3. IBUPROFEN [Concomitant]
  4. KEFLEX [Concomitant]
  5. TRAZODONE HCL [Concomitant]

REACTIONS (4)
  - ABSCESS [None]
  - DIARRHOEA [None]
  - HEPATIC ENZYME INCREASED [None]
  - NAUSEA [None]
